FAERS Safety Report 4377658-9 (Version None)
Quarter: 2004Q2

REPORT INFORMATION
  Report Type: 
  Country: None (occurrence: None)
  Receive Date: 20040608
  Receipt Date: 20040515
  Transmission Date: 20050107
  Serious: Yes (Life-Threatening, Hospitalization)
  Sender: FDA-Public Use
  Company Number: 2004215964IT

PATIENT
  Age: 80 Year
  Sex: Male

DRUGS (6)
  1. TRELSTAR DEPOT [Suspect]
     Indication: PROSTATE CANCER
     Dosage: 3.75 MG, MONTHLY, INTRAMUSCULAR
     Route: 030
     Dates: start: 20030328, end: 20031024
  2. TRELSTAR DEPOT [Suspect]
     Indication: PROSTATE CANCER
     Dosage: 3.75 MG, MONTHLY, INTRAMUSCULAR
     Route: 030
     Dates: start: 20040127, end: 20040512
  3. ZESTORETIC [Concomitant]
  4. CARDIRENE [Concomitant]
  5. PROPAFENONE HYDROCHLORIDE [Concomitant]
  6. EUDIGOX [Concomitant]

REACTIONS (2)
  - ANAEMIA [None]
  - THROMBOCYTOPENIA [None]
